FAERS Safety Report 9526207 (Version 1)
Quarter: 2013Q3

REPORT INFORMATION
  Report Type: Spontaneous
  Country: FR (occurrence: FR)
  Receive Date: 20130916
  Receipt Date: 20130916
  Transmission Date: 20140515
  Serious: Yes (Hospitalization)
  Sender: FDA-Public Use
  Company Number: FR-PFIZER INC-2013261813

PATIENT
  Age: 46 Year
  Sex: Male

DRUGS (1)
  1. TYGACIL [Suspect]
     Indication: OSTEITIS
     Dosage: UNK
     Route: 042
     Dates: start: 20090228, end: 200906

REACTIONS (2)
  - Leukopenia [Recovered/Resolved]
  - Neutropenia [Recovered/Resolved]
